FAERS Safety Report 4369681-5 (Version None)
Quarter: 2004Q2

REPORT INFORMATION
  Report Type: 
  Country: None (occurrence: None)
  Receive Date: 20040603
  Receipt Date: 20040524
  Transmission Date: 20050107
  Serious: Yes (Hospitalization)
  Sender: FDA-Public Use
  Company Number: GB-ROCHE-368618

PATIENT
  Age: 59 Year
  Sex: Female

DRUGS (3)
  1. XELODA [Suspect]
     Route: 048
     Dates: start: 20040108, end: 20040122
  2. DOCETAXEL [Concomitant]
     Route: 042
     Dates: start: 20020902, end: 20021209
  3. ANASTROZOLE [Concomitant]
     Route: 048
     Dates: start: 20030315

REACTIONS (9)
  - CAECITIS [None]
  - DEHYDRATION [None]
  - DIARRHOEA [None]
  - ELECTROLYTE IMBALANCE [None]
  - HAEMOGLOBIN DECREASED [None]
  - NEUTROPENIA [None]
  - PLATELET COUNT DECREASED [None]
  - PYREXIA [None]
  - VOMITING [None]
